FAERS Safety Report 6533860-9 (Version None)
Quarter: 2010Q1

REPORT INFORMATION
  Report Type: 
  Country: None (occurrence: None)
  Receive Date: 20100111
  Receipt Date: 20090917
  Transmission Date: 20100710
  Serious: No
  Sender: FDA-Public Use
  Company Number: US-ABBOTT-09P-163-0598334-00

PATIENT
  Sex: Male

DRUGS (2)
  1. VICODIN [Suspect]
     Indication: JOINT INJURY
     Dosage: 5 MG/500 MG PRN
     Route: 048
     Dates: start: 20090913
  2. UNKNOWN ANTIBIOTIC [Concomitant]
     Indication: JOINT INJURY
     Dates: start: 20090913

REACTIONS (1)
  - NAUSEA [None]
